FAERS Safety Report 25760348 (Version 1)
Quarter: 2025Q3

REPORT INFORMATION
  Report Type: Spontaneous
  Country: US (occurrence: US)
  Receive Date: 20250904
  Receipt Date: 20250904
  Transmission Date: 20251021
  Serious: Yes (Other)
  Sender: SHILPA MEDICARE
  Company Number: US-KOANAAP-SML-US-2025-00416

PATIENT
  Sex: Female

DRUGS (12)
  1. APREMILAST [Suspect]
     Active Substance: APREMILAST
     Indication: Dermatomyositis
  2. APREMILAST [Suspect]
     Active Substance: APREMILAST
  3. HYDROXYCHLOROQUINE [Suspect]
     Active Substance: HYDROXYCHLOROQUINE
     Indication: Dermatomyositis
  4. METHOTREXATE [Suspect]
     Active Substance: METHOTREXATE
     Indication: Dermatomyositis
  5. MYCOPHENOLATE MOFETIL [Suspect]
     Active Substance: MYCOPHENOLATE MOFETIL
     Indication: Dermatomyositis
  6. MYCOPHENOLATE MOFETIL [Suspect]
     Active Substance: MYCOPHENOLATE MOFETIL
  7. RITUXIMAB [Suspect]
     Active Substance: RITUXIMAB
     Indication: Dermatomyositis
  8. HUMAN IMMUNOGLOBULIN G [Suspect]
     Active Substance: HUMAN IMMUNOGLOBULIN G
     Indication: Dermatomyositis
     Route: 042
  9. AZATHIOPRINE [Suspect]
     Active Substance: AZATHIOPRINE
     Indication: Dermatomyositis
  10. AZATHIOPRINE [Suspect]
     Active Substance: AZATHIOPRINE
  11. PREDNISONE [Suspect]
     Active Substance: PREDNISONE
     Indication: Dermatomyositis
  12. PREDNISONE [Suspect]
     Active Substance: PREDNISONE

REACTIONS (4)
  - Treatment failure [Unknown]
  - Arthritis [Unknown]
  - Synovitis [Recovering/Resolving]
  - Dysphagia [Recovering/Resolving]
